FAERS Safety Report 23781652 (Version 1)
Quarter: 2024Q2

REPORT INFORMATION
  Report Type: Spontaneous
  Country: ES (occurrence: ES)
  Receive Date: 20240425
  Receipt Date: 20240425
  Transmission Date: 20240716
  Serious: Yes (Other)
  Sender: FDA-Public Use
  Company Number: None

PATIENT
  Age: 48 Year
  Sex: Male

DRUGS (1)
  1. TOPIRAMATE [Suspect]
     Active Substance: TOPIRAMATE
     Indication: Trigeminal neuralgia
     Dosage: TOPIRAMATE RATIOPHARM 25 MG EFG FILM-COATED TABLETS, 28 TABLETS (BLISTER)
     Route: 048
     Dates: start: 20240116, end: 20240208

REACTIONS (2)
  - Hypertensive crisis [Recovered/Resolved]
  - Dizziness [Recovered/Resolved]

NARRATIVE: CASE EVENT DATE: 20240208
